FAERS Safety Report 8266608-0 (Version None)
Quarter: 2012Q2

REPORT INFORMATION
  Report Type: 
  Country: None (occurrence: None)
  Receive Date: 20120406
  Receipt Date: 20120327
  Transmission Date: 20120825
  Serious: Yes (Other)
  Sender: FDA-Public Use
  Company Number: GB-BAXTER-2012BAX001102

PATIENT
  Sex: Male

DRUGS (2)
  1. TISSEEL VH KIT [Suspect]
  2. TISSEEL VH KIT [Suspect]
     Indication: HAEMOSTASIS

REACTIONS (2)
  - SOFT TISSUE NECROSIS [None]
  - WOUND INFECTION [None]
